FAERS Safety Report 9786972 (Version 1)
Quarter: 2013Q4

REPORT INFORMATION
  Report Type: Spontaneous
  Country: US (occurrence: US)
  Receive Date: 20131227
  Receipt Date: 20131227
  Transmission Date: 20140711
  Serious: Yes (Other)
  Sender: FDA-Public Use
  Company Number: CHPA2013US018732

PATIENT
  Age: 52 Year
  Sex: Male

DRUGS (2)
  1. EX-LAX REG STR CHOCOLATED LAX PCS SEN [Suspect]
     Indication: CONSTIPATION
     Dosage: UNK, PRN
     Route: 048
  2. EX-LAX REG STR CHOCOLATED LAX PCS SEN [Suspect]
     Dosage: 1 DF, ONCE/SINGLE
     Route: 048
     Dates: start: 20131216, end: 20131216

REACTIONS (7)
  - Cerebrovascular accident [Recovering/Resolving]
  - Hypertension [Not Recovered/Not Resolved]
  - Limb discomfort [Not Recovered/Not Resolved]
  - Frequent bowel movements [Not Recovered/Not Resolved]
  - Muscle spasms [Not Recovered/Not Resolved]
  - Rotator cuff syndrome [Not Recovered/Not Resolved]
  - Underdose [Unknown]
